FAERS Safety Report 25362562 (Version 1)
Quarter: 2025Q2

REPORT INFORMATION
  Report Type: Spontaneous
  Country: US (occurrence: None)
  Receive Date: 20250523
  Receipt Date: 20250523
  Transmission Date: 20250717
  Serious: Yes (Other)
  Sender: FDA-CTU
  Company Number: None

PATIENT
  Sex: Female

DRUGS (8)
  1. LENALIDOMIDE [Suspect]
     Active Substance: LENALIDOMIDE
     Indication: Carcinoid tumour
     Dates: start: 20250207
  2. LENALIDOMIDE [Suspect]
     Active Substance: LENALIDOMIDE
     Indication: Neoplasm malignant
  3. ACETAMINOPHE TAB [Concomitant]
  4. ALBUTEROL AER HFA [Concomitant]
  5. ANORO ELLIPT AER 62.5-25 [Concomitant]
  6. ATORVASTATIN [Concomitant]
     Active Substance: ATORVASTATIN
  7. METFORMIN TAB [Concomitant]
  8. PANTOPRAZOLE TAB [Concomitant]

REACTIONS (1)
  - Oxygen saturation decreased [None]
